FAERS Safety Report 6881394-4 (Version None)
Quarter: 2010Q3

REPORT INFORMATION
  Report Type: 
  Country: None (occurrence: None)
  Receive Date: 20100728
  Receipt Date: 20100728
  Transmission Date: 20110219
  Serious: Yes (Hospitalization)
  Sender: FDA-Public Use
  Company Number: None

PATIENT
  Sex: Male
  Weight: 113 kg

DRUGS (17)
  1. TEMOZOLOMIDE [Suspect]
     Indication: GLIOBLASTOMA MULTIFORME
     Dosage: 230MG DAILY ORAL
     Route: 048
     Dates: start: 20090106, end: 20091026
  2. TEMOZOLOMIDE [Suspect]
     Indication: GLIOBLASTOMA MULTIFORME
     Dosage: 230 DAILY ORAL
     Route: 048
     Dates: start: 20091103, end: 20091123
  3. TEMOZOLOMIDE [Suspect]
     Indication: GLIOBLASTOMA MULTIFORME
     Dosage: 230MG DAILY ORAL
     Route: 048
     Dates: start: 20091006, end: 20091026
  4. ASACOL [Concomitant]
  5. DYASIDE [Concomitant]
  6. LORAZEPAM [Concomitant]
  7. METOPROLOL [Concomitant]
  8. LASIX [Concomitant]
  9. POTASSIUM CHLORIDE [Concomitant]
  10. INDOMETHACIN [Concomitant]
  11. EXTRA STRENGTH TYLENOL [Concomitant]
  12. PREDNISONE [Concomitant]
  13. ONDANSETRON [Concomitant]
  14. PROCHLORPERAZINE [Concomitant]
  15. PENTAMIDINE ISETHIONATE [Concomitant]
  16. DEPAKOTE [Concomitant]
  17. KEPPRA [Concomitant]

REACTIONS (5)
  - ATRIAL FIBRILLATION [None]
  - CONVULSION [None]
  - ELECTROCARDIOGRAM ST SEGMENT ABNORMAL [None]
  - ELECTROCARDIOGRAM T WAVE ABNORMAL [None]
  - VENTRICULAR EXTRASYSTOLES [None]
